FAERS Safety Report 15275119 (Version 5)
Quarter: 2019Q3

REPORT INFORMATION
  Report Type: Report from Study
  Country: CN (occurrence: CN)
  Receive Date: 20180814
  Receipt Date: 20190812
  Transmission Date: 20191004
  Serious: Yes (Hospitalization)
  Sender: FDA-Public Use
  Company Number: CN-ROCHE-2167805

PATIENT
  Age: 48 Year
  Sex: Male
  Weight: 64 kg

DRUGS (7)
  1. ATEZOLIZUMAB. [Suspect]
     Active Substance: ATEZOLIZUMAB
     Indication: NON-SMALL CELL LUNG CANCER
     Dosage: ON 18/JUL/2018, HE RECEIVED THE MOST RECENT DOSE OF ATEZOLIZUMAB 1200 MG PRIOR TO EVENT ONSET.
     Route: 042
     Dates: start: 20161111
  2. BICYCLOL [Concomitant]
     Active Substance: BICYCLOL
     Route: 065
     Dates: start: 20161109
  3. CEFTAZIDIME. [Concomitant]
     Active Substance: CEFTAZIDIME
     Route: 065
     Dates: start: 20180808, end: 20180812
  4. AMBROXOL HYDROCHLORIDE [Concomitant]
     Active Substance: AMBROXOL HYDROCHLORIDE
     Route: 065
     Dates: start: 20180808, end: 20180812
  5. RIBONUCLEIC ACID [Concomitant]
     Active Substance: RIBONUCLEIC ACID
     Route: 065
     Dates: start: 20180808, end: 20180812
  6. SILYMARIN [SILYBUM MARIANUM] [Concomitant]
     Route: 065
     Dates: start: 20180124, end: 20180813
  7. LEUCOGEN [Concomitant]
     Active Substance: LEUCOGEN
     Indication: WHITE BLOOD CELL COUNT DECREASED
     Route: 065
     Dates: start: 20170819

REACTIONS (1)
  - Chest pain [Recovered/Resolved]

NARRATIVE: CASE EVENT DATE: 20180807
